FAERS Safety Report 22143963 (Version 3)
Quarter: 2023Q2

REPORT INFORMATION
  Report Type: Spontaneous
  Country: US (occurrence: US)
  Receive Date: 20230327
  Receipt Date: 20230519
  Transmission Date: 20230721
  Serious: Yes (Other)
  Sender: FDA-Public Use
  Company Number: US-BRISTOL-MYERS SQUIBB COMPANY-2023-043293

PATIENT
  Age: 70 Year
  Sex: Male
  Weight: 86.64 kg

DRUGS (2)
  1. REVLIMID [Suspect]
     Active Substance: LENALIDOMIDE
     Indication: Plasma cell myeloma
     Dosage: FREQ: 2WKS ON 1WK OFF
     Route: 048
  2. REVLIMID [Suspect]
     Active Substance: LENALIDOMIDE
     Dosage: FREQ: 15 MG DAILY FOR 14 DAYS
     Route: 048

REACTIONS (4)
  - Off label use [Unknown]
  - Pneumonia [Unknown]
  - Diarrhoea [Unknown]
  - Rash macular [Not Recovered/Not Resolved]
